FAERS Safety Report 8610331 (Version 2)
Quarter: 2012Q4

REPORT INFORMATION
  Report Type: 
  Country: JP (occurrence: JP)
  Receive Date: 20120612
  Receipt Date: 20121023
  Transmission Date: 20130627
  Serious: Yes (Death, Other)
  Sender: FDA-Public Use
  Company Number: JP-ELI_LILLY_AND_COMPANY-JP201206000470

PATIENT
  Age: 67 None
  Sex: Male
  Weight: 56.4 kg

DRUGS (12)
  1. GEMZAR [Suspect]
     Indication: BILE DUCT CANCER
     Dosage: 1000 mg, UNK
     Route: 042
     Dates: start: 20051117, end: 20051117
  2. GEMZAR [Suspect]
     Dosage: 1600 mg, UNK
     Route: 042
     Dates: start: 20051124, end: 20060424
  3. GEMZAR [Suspect]
     Dosage: 1200 mg, UNK
     Route: 042
     Dates: start: 20060508, end: 20061002
  4. TS 1 [Concomitant]
     Indication: BILE DUCT CANCER
     Dosage: 120 mg, UNK
     Dates: start: 20060508
  5. MAGNESIUM OXIDE [Concomitant]
     Dosage: 0.5 g, tid
     Route: 048
     Dates: start: 20051121
  6. BIOFERMIN                          /00275501/ [Concomitant]
     Dosage: 1 g, tid
     Route: 048
     Dates: start: 20051124
  7. CRAVIT [Concomitant]
     Dosage: 1 DF, tid
     Route: 048
     Dates: start: 20060417, end: 20060423
  8. TAKEPRON [Concomitant]
     Dosage: 15 mg, qd
     Route: 048
     Dates: start: 20060515
  9. TAKEPRON [Concomitant]
     Dosage: 30 mg, qd
     Route: 048
     Dates: start: 20060605, end: 20060820
  10. DECADRON                           /00016002/ [Concomitant]
     Indication: PROPHYLAXIS
     Dosage: 4 mg, UNK
     Route: 042
     Dates: start: 20051117
  11. DECADRON                           /00016002/ [Concomitant]
     Indication: PROPHYLAXIS
     Dosage: 8 mg, UNK
     Route: 042
     Dates: start: 20051117
  12. KYTRIL [Concomitant]
     Indication: PROPHYLAXIS
     Dosage: UNK
     Route: 042
     Dates: start: 20060509

REACTIONS (3)
  - Death [Fatal]
  - Device occlusion [Unknown]
  - Interstitial lung disease [Recovering/Resolving]
